FAERS Safety Report 4650395-9 (Version None)
Quarter: 2005Q2

REPORT INFORMATION
  Report Type: 
  Country: None (occurrence: None)
  Receive Date: 20050429
  Receipt Date: 20050413
  Transmission Date: 20051028
  Serious: Yes (Hospitalization)
  Sender: FDA-Public Use
  Company Number: 2005-DE-01438GB

PATIENT
  Age: 70 Year
  Sex: Male

DRUGS (4)
  1. VIRAMUNE [Suspect]
     Indication: HIV INFECTION
     Dosage: 400 MG (200 MG) PO
     Route: 048
     Dates: start: 20030203, end: 20050310
  2. ZERIT [Concomitant]
  3. VIDEX [Concomitant]
  4. SALOSPIR (ACETYLSALICYLIC ACID) (TA) [Concomitant]

REACTIONS (1)
  - HEPATIC CIRRHOSIS [None]
